FAERS Safety Report 9044637 (Version 1)
Quarter: 2013Q1

REPORT INFORMATION
  Report Type: Spontaneous
  Country: FR (occurrence: FR)
  Receive Date: 20130130
  Receipt Date: 20130130
  Transmission Date: 20140127
  Serious: Yes (Hospitalization)
  Sender: FDA-Public Use
  Company Number: FR-GILEAD-2013-0068559

PATIENT
  Age: 40 Year
  Sex: Male

DRUGS (20)
  1. TRUVADA [Suspect]
     Indication: HIV INFECTION
     Dosage: 1 DF, UNK
     Route: 048
     Dates: start: 20121023, end: 20121122
  2. TRUVADA [Suspect]
     Dosage: 1 DF, UNK
     Route: 048
     Dates: start: 20121203, end: 20121212
  3. ATRIPLA [Suspect]
     Indication: HIV INFECTION
     Dosage: UNK
     Route: 048
     Dates: start: 20120905, end: 20121023
  4. ISENTRESS [Suspect]
     Indication: HIV INFECTION
     Dosage: 1 DF, QOD
     Route: 048
     Dates: start: 20121023, end: 20121212
  5. KIVEXA [Suspect]
     Indication: HIV INFECTION
     Dosage: 1 UNK, UNK
     Route: 048
     Dates: start: 20121122, end: 20121203
  6. BACTRIM [Suspect]
     Indication: TUBERCULOSIS
     Dosage: UNK
     Route: 048
     Dates: start: 20120824, end: 20121212
  7. TRIFLUCAN [Concomitant]
  8. INEXIUM /01479302/ [Concomitant]
  9. RIFINAH [Concomitant]
     Dosage: UNK
     Dates: start: 20121023
  10. FLUCONAZOLE [Concomitant]
     Indication: OESOPHAGEAL CANDIDIASIS
     Dosage: UNK
     Dates: start: 20120907
  11. ESOMEPRAZOL                        /01479301/ [Concomitant]
     Indication: GASTRITIS
  12. PHLOROGLUCINOL [Concomitant]
     Dosage: UNK
     Dates: start: 20121119
  13. HYDROXYZINE [Concomitant]
     Dosage: UNK
     Dates: start: 20121119
  14. PARACETAMOL [Concomitant]
     Dosage: UNK
     Dates: start: 20121119
  15. NEFOPAM [Concomitant]
     Dosage: UNK
     Dates: start: 20121119
  16. TRAMADOL [Concomitant]
     Dosage: UNK
     Dates: start: 20121119
  17. FONDAPARINUX [Concomitant]
     Dosage: UNK
     Dates: start: 20121121
  18. IVERMECTIN [Concomitant]
     Indication: ACARODERMATITIS
  19. CETIRIZINE [Concomitant]
     Dosage: UNK
     Dates: start: 20121122
  20. VALACICLOVIR [Concomitant]
     Indication: SIMPLEX VIRUS TEST POSITIVE
     Dosage: UNK
     Dates: start: 20121127

REACTIONS (1)
  - Drug reaction with eosinophilia and systemic symptoms [Recovering/Resolving]
